FAERS Safety Report 16340973 (Version 1)
Quarter: 2019Q2

REPORT INFORMATION
  Report Type: Spontaneous
  Country: CA (occurrence: CA)
  Receive Date: 20190522
  Receipt Date: 20190522
  Transmission Date: 20190711
  Serious: Yes (Death)
  Sender: FDA-Public Use
  Company Number: CA-TEVA-2019-CA-1051017

PATIENT
  Age: 85 Year
  Sex: Male

DRUGS (10)
  1. SILDENAFIL CITRATE. [Suspect]
     Active Substance: SILDENAFIL CITRATE
     Indication: PULMONARY ARTERIAL HYPERTENSION
     Route: 065
  2. ALLOPURINOL. [Concomitant]
     Active Substance: ALLOPURINOL
  3. TYLENOL [Concomitant]
     Active Substance: ACETAMINOPHEN
  4. RABEPRAZOLE [Concomitant]
     Active Substance: RABEPRAZOLE
  5. SILDENAFIL CITRATE. [Suspect]
     Active Substance: SILDENAFIL CITRATE
     Route: 065
  6. FUROSEMIDE. [Concomitant]
     Active Substance: FUROSEMIDE
  7. OPSUMIT [Concomitant]
     Active Substance: MACITENTAN
  8. SILDENAFIL CITRATE. [Suspect]
     Active Substance: SILDENAFIL CITRATE
     Dosage: 60 MILLIGRAM DAILY;
     Route: 048
  9. SILDENAFIL CITRATE. [Suspect]
     Active Substance: SILDENAFIL CITRATE
     Indication: CONNECTIVE TISSUE DISORDER
     Dosage: 60 MILLIGRAM DAILY;
     Route: 048
  10. METAMUCIL [Concomitant]
     Active Substance: PLANTAGO SEED

REACTIONS (7)
  - Decreased activity [Fatal]
  - Dyspnoea [Fatal]
  - General physical health deterioration [Fatal]
  - Death [Fatal]
  - Epistaxis [Fatal]
  - Anxiety [Fatal]
  - Disease progression [Fatal]
